FAERS Safety Report 20309532 (Version 2)
Quarter: 2022Q1

REPORT INFORMATION
  Report Type: Spontaneous
  Country: US (occurrence: US)
  Receive Date: 20220107
  Receipt Date: 20220222
  Transmission Date: 20220424
  Serious: No
  Sender: FDA-Public Use
  Company Number: US-PFIZER INC-202101780932

PATIENT
  Age: 14 Year
  Sex: Female

DRUGS (1)
  1. GENOTROPIN [Suspect]
     Active Substance: SOMATROPIN
     Dosage: 2.0 MG, DAILY
     Dates: start: 202109

REACTIONS (3)
  - Device use error [Unknown]
  - Device issue [Unknown]
  - Drug dose omission by device [Unknown]
